FAERS Safety Report 5746683-5 (Version None)
Quarter: 2008Q2

REPORT INFORMATION
  Report Type: 
  Country: None (occurrence: None)
  Receive Date: 20080522
  Receipt Date: 20080515
  Transmission Date: 20081010
  Serious: Yes (Life-Threatening, Hospitalization)
  Sender: FDA-Public Use
  Company Number: CH-AVENTIS-200814593GDDC

PATIENT
  Age: 58 Year
  Sex: Male

DRUGS (2)
  1. RIFATER [Suspect]
     Dosage: DOSE QUANTITY: 1
     Route: 048
     Dates: start: 20080401, end: 20080409
  2. MYAMBUTOL [Concomitant]
     Dates: start: 20080401, end: 20080409

REACTIONS (5)
  - COOMBS POSITIVE HAEMOLYTIC ANAEMIA [None]
  - HEPATOCELLULAR INJURY [None]
  - RENAL FAILURE ACUTE [None]
  - SYSTEMIC INFLAMMATORY RESPONSE SYNDROME [None]
  - THROMBOCYTOPENIA [None]
